FAERS Safety Report 23883742 (Version 2)
Quarter: 2024Q2

REPORT INFORMATION
  Report Type: Spontaneous
  Country: IL (occurrence: IL)
  Receive Date: 20240522
  Receipt Date: 20240603
  Transmission Date: 20240715
  Serious: Yes (Other)
  Sender: FDA-Public Use
  Company Number: IL-CELLTRION INC.-2024IL008353

PATIENT

DRUGS (4)
  1. INFLIXIMAB [Suspect]
     Active Substance: INFLIXIMAB
     Indication: Colitis ulcerative
     Dosage: TREATMENT START DATE, 120MG INJECTION EVERY 2 WEEKS
     Route: 058
     Dates: start: 20240123
  2. INFLIXIMAB [Suspect]
     Active Substance: INFLIXIMAB
     Dosage: SECOND INJECTION, 120MG EVERY 2 WEEKS.
     Route: 058
     Dates: start: 20240402
  3. INFLIXIMAB [Suspect]
     Active Substance: INFLIXIMAB
     Dosage: 120MG INJECTION EVERY 2 WEEKS
     Route: 058
  4. RECITAL [CITALOPRAM HYDROBROMIDE] [Concomitant]
     Dosage: 4 MG PER DAY

REACTIONS (5)
  - Lip pain [Recovering/Resolving]
  - Hypoaesthesia oral [Recovered/Resolved]
  - Genital abscess [Recovering/Resolving]
  - Dizziness [Recovered/Resolved]
  - Intentional product use issue [Unknown]

NARRATIVE: CASE EVENT DATE: 20240319
